FAERS Safety Report 20159722 (Version 1)
Quarter: 2021Q4

REPORT INFORMATION
  Report Type: Report from Study
  Country: IT (occurrence: IT)
  Receive Date: 20211208
  Receipt Date: 20211208
  Transmission Date: 20220303
  Serious: Yes (Other)
  Sender: FDA-Public Use
  Company Number: IT-NOVARTISPH-NVSC2021IT248635

PATIENT
  Sex: Male

DRUGS (9)
  1. RYDAPT [Suspect]
     Active Substance: MIDOSTAURIN
     Indication: Systemic mastocytosis
     Dosage: 100 UNK, BID
     Route: 065
     Dates: start: 20200901, end: 20201125
  2. RYDAPT [Suspect]
     Active Substance: MIDOSTAURIN
     Dosage: 50 UNK, BID
     Route: 065
     Dates: start: 20201218, end: 20210101
  3. RYDAPT [Suspect]
     Active Substance: MIDOSTAURIN
     Dosage: 100 UNK, BID
     Route: 065
     Dates: start: 20210102, end: 20210202
  4. RYDAPT [Suspect]
     Active Substance: MIDOSTAURIN
     Dosage: 50 UNK, BID
     Route: 065
     Dates: start: 20210208, end: 20210215
  5. RYDAPT [Suspect]
     Active Substance: MIDOSTAURIN
     Dosage: 100 UNK, BID
     Route: 065
     Dates: start: 20210216, end: 20210310
  6. RYDAPT [Suspect]
     Active Substance: MIDOSTAURIN
     Dosage: 50 UNK, BID
     Route: 065
     Dates: start: 20210311, end: 20210321
  7. RYDAPT [Suspect]
     Active Substance: MIDOSTAURIN
     Dosage: 100 UNK, BID
     Route: 065
     Dates: start: 20210322, end: 20210412
  8. RYDAPT [Suspect]
     Active Substance: MIDOSTAURIN
     Dosage: 50 UNK, BID
     Route: 065
     Dates: start: 20210413, end: 20210511
  9. RYDAPT [Suspect]
     Active Substance: MIDOSTAURIN
     Dosage: 100 UNK, BID
     Route: 065
     Dates: start: 20210512, end: 20210708

REACTIONS (6)
  - Cytopenia [Recovered/Resolved]
  - Cytopenia [Not Recovered/Not Resolved]
  - Tachyarrhythmia [Recovered/Resolved]
  - Escherichia infection [Recovered/Resolved]
  - Diarrhoea [Recovered/Resolved]
  - Stomatitis [Not Recovered/Not Resolved]

NARRATIVE: CASE EVENT DATE: 20210310
